APPROVED DRUG PRODUCT: PREDNISOLONE SODIUM PHOSPHATE
Active Ingredient: PREDNISOLONE SODIUM PHOSPHATE
Strength: EQ 5MG BASE/5ML
Dosage Form/Route: SOLUTION;ORAL
Application: A075988 | Product #001 | TE Code: AA
Applicant: CHARTWELL RX SCIENCES LLC
Approved: May 25, 2004 | RLD: No | RS: No | Type: RX